FAERS Safety Report 9517478 (Version 4)
Quarter: 2014Q2

REPORT INFORMATION
  Report Type: Spontaneous
  Country: US (occurrence: US)
  Receive Date: 20130911
  Receipt Date: 20140508
  Transmission Date: 20141212
  Serious: Yes (Other)
  Sender: FDA-Public Use
  Company Number: US-GILEAD-2013-0076986

PATIENT
  Sex: Male
  Weight: 70.75 kg

DRUGS (12)
  1. RANEXA [Suspect]
     Indication: ANGINA PECTORIS
     Dosage: 1000 MG, UNK
     Route: 065
  2. RANEXA [Suspect]
     Indication: DYSPNOEA EXERTIONAL
     Dosage: 500 MG, UNK
     Dates: end: 2013
  3. COZAAR [Suspect]
     Indication: PRODUCT USED FOR UNKNOWN INDICATION
     Route: 065
  4. ALPHA LIPOIC ACID [Suspect]
     Indication: PRODUCT USED FOR UNKNOWN INDICATION
     Route: 065
  5. AMLODIPINE [Suspect]
     Indication: PRODUCT USED FOR UNKNOWN INDICATION
     Dosage: 10 MG, UNK
     Route: 048
  6. SIMVASTATIN [Concomitant]
  7. ATENOLOL [Concomitant]
  8. PLAVIX [Concomitant]
  9. ASA [Concomitant]
  10. LEVOTHROID [Concomitant]
  11. NORTRIPTYLINE [Concomitant]
  12. NOVOLOG [Concomitant]

REACTIONS (5)
  - Blood creatinine increased [Recovering/Resolving]
  - Somnolence [Recovered/Resolved]
  - Dizziness [Recovered/Resolved]
  - Asthenia [Recovering/Resolving]
  - Tremor [Recovered/Resolved]
